FAERS Safety Report 8875145 (Version 1)
Quarter: 2012Q4

REPORT INFORMATION
  Report Type: 
  Country: US (occurrence: US)
  Receive Date: 20121026
  Receipt Date: 20121026
  Transmission Date: 20130627
  Serious: No
  Sender: FDA-Public Use
  Company Number: US-AMGEN-USASP2012045016

PATIENT
  Age: 53 Year
  Sex: Female
  Weight: 104.31 kg

DRUGS (10)
  1. ENBREL [Suspect]
     Indication: PRODUCT USED FOR UNKNOWN INDICATION
     Dosage: 25 mg, qwk
     Route: 058
  2. PREDNISONE [Concomitant]
     Dosage: 1 mg, UNK
  3. TERBUTALIN [Concomitant]
     Dosage: 5 mg, UNK
  4. THEOPHYLLINE [Concomitant]
     Dosage: 200 mg, UNK
  5. LIPITOR [Concomitant]
     Dosage: 10 mg, UNK
  6. CALCIUM [Concomitant]
     Dosage: 500 mg, UNK
  7. VIT D [Concomitant]
  8. NASACORT AQ [Concomitant]
     Dosage: 55 mug, UNK
  9. MUCINEX [Concomitant]
     Dosage: 5 UNK, UNK
  10. BENADRYL                           /00000402/ [Concomitant]
     Dosage: 25 mg, UNK

REACTIONS (1)
  - Sinusitis [Unknown]
